FAERS Safety Report 25426399 (Version 2)
Quarter: 2025Q4

REPORT INFORMATION
  Report Type: Spontaneous
  Country: CA (occurrence: CA)
  Receive Date: 20250612
  Receipt Date: 20251017
  Transmission Date: 20260117
  Serious: Yes (Other)
  Sender: ABBVIE
  Company Number: CA-LUNDBECK-DKLU4015420

PATIENT
  Age: 62 Year
  Sex: Female
  Weight: 58.97 kg

DRUGS (8)
  1. ESCITALOPRAM [Suspect]
     Active Substance: ESCITALOPRAM OXALATE
     Indication: Product used for unknown indication
     Route: 048
  2. PERINDOPRIL [Concomitant]
     Active Substance: PERINDOPRIL
     Indication: Blood pressure abnormal
     Dosage: 8 MILLIGRAM
  3. PRAMIPEXOLE [Concomitant]
     Active Substance: PRAMIPEXOLE
     Indication: Product used for unknown indication
  4. PREMARIN [Concomitant]
     Active Substance: ESTROGENS, CONJUGATED
     Indication: Product used for unknown indication
     Dosage: DOSE - 1 MILLIGRAM
  5. ARIPIPRAZOLE [Suspect]
     Active Substance: ARIPIPRAZOLE
     Indication: Psychotic disorder
     Dosage: DOSE - 2 MILLIGRAM
     Route: 065
  6. ARIPIPRAZOLE [Suspect]
     Active Substance: ARIPIPRAZOLE
     Indication: Psychotic disorder
     Dosage: DOSE - 0.125 MILLIGRAM
     Route: 065
  7. ARIPIPRAZOLE [Suspect]
     Active Substance: ARIPIPRAZOLE
     Indication: Psychotic disorder
     Dosage: DOSE - 30 MILLIGRAM
     Route: 065
  8. ARIPIPRAZOLE [Suspect]
     Active Substance: ARIPIPRAZOLE
     Indication: Psychotic disorder
     Dosage: DOSE - 10 MILLIGRAM
     Route: 065

REACTIONS (13)
  - Respiratory depression [Unknown]
  - Electrolyte imbalance [Unknown]
  - Uterine prolapse [Not Recovered/Not Resolved]
  - Aphasia [Unknown]
  - Hyponatraemia [Unknown]
  - Hypotension [Unknown]
  - Tremor [Not Recovered/Not Resolved]
  - Myocardial infarction [Unknown]
  - Weight increased [Not Recovered/Not Resolved]
  - Weight increased [Unknown]
  - Myocardial infarction [Not Recovered/Not Resolved]
  - Hypertension [Unknown]
  - Urinary tract infection [Not Recovered/Not Resolved]
